FAERS Safety Report 4759158-7 (Version None)
Quarter: 2005Q3

REPORT INFORMATION
  Report Type: 
  Country: None (occurrence: None)
  Receive Date: 20050831
  Receipt Date: 20050816
  Transmission Date: 20060218
  Serious: Yes (Other)
  Sender: FDA-Public Use
  Company Number: S05-CAN-03155-01

PATIENT
  Age: 56 Year
  Sex: Male

DRUGS (6)
  1. CITALOPRAM [Suspect]
     Dosage: 40 MG QD
  2. LAMOTRIGINE [Suspect]
     Dosage: 10 MG QD
  3. ASPIRIN [Concomitant]
  4. DIVALPROEX SODIUM [Concomitant]
  5. LIPITOR [Concomitant]
  6. RAMIPRIL [Concomitant]

REACTIONS (2)
  - HYPOMANIA [None]
  - PERSONALITY DISORDER [None]
